FAERS Safety Report 4470840-1 (Version None)
Quarter: 2004Q4

REPORT INFORMATION
  Report Type: 
  Country: None (occurrence: None)
  Receive Date: 20041011
  Receipt Date: 20040928
  Transmission Date: 20050328
  Serious: Yes (Hospitalization, Other)
  Sender: FDA-Public Use
  Company Number: US-BRISTOL-MYERS SQUIBB COMPANY-12714622

PATIENT
  Age: 49 Year
  Sex: Male

DRUGS (5)
  1. ABILIFY [Suspect]
     Indication: PSYCHOTIC DISORDER
     Route: 048
     Dates: start: 20031112, end: 20040921
  2. ABILIFY [Suspect]
     Indication: SCHIZOPHRENIA
     Route: 048
     Dates: start: 20031112, end: 20040921
  3. KLONOPIN [Concomitant]
     Dates: start: 20040526
  4. COGENTIN [Concomitant]
     Dates: start: 19960101
  5. DEPAKOTE [Concomitant]
     Dates: start: 19990101

REACTIONS (6)
  - ALANINE AMINOTRANSFERASE INCREASED [None]
  - ASPARTATE AMINOTRANSFERASE INCREASED [None]
  - BLOOD CREATINE PHOSPHOKINASE INCREASED [None]
  - CATATONIA [None]
  - CONVULSION [None]
  - PRESCRIBED OVERDOSE [None]
